FAERS Safety Report 5759584-3 (Version None)
Quarter: 2008Q2

REPORT INFORMATION
  Report Type: 
  Country: None (occurrence: None)
  Receive Date: 20080605
  Receipt Date: 20080530
  Transmission Date: 20081010
  Serious: Yes (Other)
  Sender: FDA-Public Use
  Company Number: US-ASTRAZENECA-2008UW10945

PATIENT
  Age: 65 Year
  Sex: Male

DRUGS (15)
  1. PULMICORT RESPULES [Suspect]
     Indication: EMPHYSEMA
     Route: 055
     Dates: start: 20080506
  2. IPRATROPIUM BROMIDE [Concomitant]
  3. ALBUTEROL [Concomitant]
  4. FORADIL [Concomitant]
  5. SINGULAIR [Concomitant]
  6. AUGMENTIN '125' [Concomitant]
  7. ASPIRIN [Concomitant]
  8. PREDNISONE TAB [Concomitant]
  9. METOPROLOL TARTRATE [Concomitant]
  10. SIMVASTATIN [Concomitant]
  11. FINASTERIDE [Concomitant]
  12. ASACOL [Concomitant]
  13. LASIX [Concomitant]
  14. MULTI-VITAMIN [Concomitant]
  15. AFRIN [Concomitant]

REACTIONS (1)
  - HAEMOPTYSIS [None]
